FAERS Safety Report 21757120 (Version 1)
Quarter: 2022Q4

REPORT INFORMATION
  Report Type: Report from Study
  Country: US (occurrence: US)
  Receive Date: 20221220
  Receipt Date: 20221220
  Transmission Date: 20230112
  Serious: No
  Sender: FDA-Public Use
  Company Number: US-ABBVIE-4196921

PATIENT
  Sex: Female

DRUGS (15)
  1. RINVOQ [Suspect]
     Active Substance: UPADACITINIB
     Indication: Rheumatoid arthritis
     Dosage: FIRST ADMIN DATE: 2022 OCT 15
     Route: 048
  2. TRIAMT/HCTZ TAB 37.5-25 [Concomitant]
     Indication: Product used for unknown indication
  3. HYDROXYCHLOR TAB 200 MG [Concomitant]
     Indication: Product used for unknown indication
  4. SUMATRIPTAN TAB 50MG [Concomitant]
     Indication: Product used for unknown indication
  5. HYDROCO/APAP TAB 10-325MG [Concomitant]
     Indication: Product used for unknown indication
  6. AMITRIPTYLIN TAB 10MG [Concomitant]
     Indication: Product used for unknown indication
  7. LIDOCAINE PAD 5% [Concomitant]
     Indication: Product used for unknown indication
  8. MORPHINE SUL TAB 15MG ER [Concomitant]
     Indication: Product used for unknown indication
  9. FLUCONAZOLE TAB 150MG [Concomitant]
     Indication: Product used for unknown indication
  10. UBRELVY TAB 50MG [Concomitant]
     Indication: Product used for unknown indication
  11. UBRELVY TAB 100MG [Concomitant]
     Indication: Product used for unknown indication
  12. METHOCARBAM TAB 500MG [Concomitant]
     Indication: Product used for unknown indication
  13. TOPIRAMATE TAB 25MG; [Concomitant]
     Indication: Product used for unknown indication
  14. VALACYCLOVIR [Concomitant]
     Active Substance: VALACYCLOVIR HYDROCHLORIDE
     Indication: Product used for unknown indication
  15. PREGABALIN CAP 150MG [Concomitant]
     Indication: Product used for unknown indication

REACTIONS (4)
  - Infection [Unknown]
  - Arthralgia [Unknown]
  - Rash [Unknown]
  - Skin irritation [Unknown]

NARRATIVE: CASE EVENT DATE: 20220101
